FAERS Safety Report 4442083-9 (Version None)
Quarter: 2004Q3

REPORT INFORMATION
  Report Type: 
  Country: None (occurrence: None)
  Receive Date: 20040901
  Receipt Date: 20040818
  Transmission Date: 20050211
  Serious: Yes (Hospitalization)
  Sender: FDA-Public Use
  Company Number: STA-AE-04-MTX-371

PATIENT
  Age: 76 Year
  Sex: Female

DRUGS (7)
  1. METHOTREXATE [Suspect]
     Indication: RHEUMATOID ARTHRITIS
     Dosage: SEE IMAGE
     Route: 048
     Dates: start: 19890101, end: 20040703
  2. METHOTREXATE [Suspect]
     Indication: RHEUMATOID ARTHRITIS
     Dosage: SEE IMAGE
     Route: 048
     Dates: start: 20040704, end: 20040709
  3. CORTANCYL (PREDNISONE) [Concomitant]
  4. CLAFORAN [Concomitant]
  5. TAVANIC (LEVOFLOXACIN) [Concomitant]
  6. PREVISCAN (FLUINDIONE) [Concomitant]
  7. LSISLIX (FUROSEMIDE) [Concomitant]

REACTIONS (4)
  - DEHYDRATION [None]
  - MULTIPLE MYELOMA [None]
  - PANCYTOPENIA [None]
  - PNEUMONITIS [None]
